FAERS Safety Report 11867198 (Version 4)
Quarter: 2016Q1

REPORT INFORMATION
  Report Type: Report from Study
  Country: DE (occurrence: DE)
  Receive Date: 20151224
  Receipt Date: 20160202
  Transmission Date: 20160526
  Serious: Yes (Hospitalization)
  Sender: FDA-Public Use
  Company Number: DE-ASTELLAS-2015US047399

PATIENT
  Age: 69 Year
  Sex: Male

DRUGS (6)
  1. SOLIFENACIN-MIRABEGRON [Suspect]
     Active Substance: MIRABEGRON\SOLIFENACIN
     Indication: HYPERTONIC BLADDER
     Dosage: 3 DF, DAILY
     Route: 048
     Dates: start: 20141011, end: 20150105
  2. SOLIFENACIN-MIRABEGRON [Suspect]
     Active Substance: MIRABEGRON\SOLIFENACIN
     Dosage: 2 DF, DAILY
     Route: 048
     Dates: start: 20150211, end: 20151213
  3. SOLIFENACIN-MIRABEGRON [Suspect]
     Active Substance: MIRABEGRON\SOLIFENACIN
     Dosage: 2 DF, DAILY
     Route: 048
     Dates: start: 20160105
  4. CANDESARTAN [Concomitant]
     Active Substance: CANDESARTAN
     Indication: HYPERTENSION
     Dosage: 32 MG, DAILY.
     Route: 048
     Dates: start: 20121120
  5. DUODART [Concomitant]
     Active Substance: DUTASTERIDE\TAMSULOSIN
     Indication: BENIGN PROSTATIC HYPERPLASIA
     Dosage: 0.5/0.4 MG, DAILY.
     Route: 048
     Dates: start: 20140131, end: 201407
  6. DUODART [Concomitant]
     Active Substance: DUTASTERIDE\TAMSULOSIN
     Dosage: 0.5/0.4 MG, DAILY.
     Route: 048
     Dates: start: 20140911

REACTIONS (3)
  - Delirium [Recovered/Resolved]
  - Bronchitis [Recovered/Resolved]
  - Superinfection bacterial [Recovered/Resolved]

NARRATIVE: CASE EVENT DATE: 20151213
